FAERS Safety Report 16215426 (Version 4)
Quarter: 2019Q3

REPORT INFORMATION
  Report Type: Spontaneous
  Country: GB (occurrence: GB)
  Receive Date: 20190419
  Receipt Date: 20190803
  Transmission Date: 20191004
  Serious: Yes (Death, Other)
  Sender: FDA-Public Use
  Company Number: GB-TEVA-2019-GB-1039095

PATIENT
  Age: 64 Year
  Sex: Male

DRUGS (14)
  1. SPIRONOLACTONE. [Concomitant]
     Active Substance: SPIRONOLACTONE
  2. WARFARIN [Concomitant]
     Active Substance: WARFARIN
  3. COPAXONE [Suspect]
     Active Substance: GLATIRAMER ACETATE
     Indication: MULTIPLE SCLEROSIS
     Dosage: 20 MILLIGRAM/MILLILITERS DAILY;
     Route: 058
     Dates: start: 20140903, end: 201904
  4. METFORMIN [Concomitant]
     Active Substance: METFORMIN HYDROCHLORIDE
  5. OMEPRAZOLE. [Concomitant]
     Active Substance: OMEPRAZOLE
  6. CANDESARTAN. [Concomitant]
     Active Substance: CANDESARTAN
  7. FRUSEMIDE [Concomitant]
     Active Substance: FUROSEMIDE
  8. PREGABALIN. [Concomitant]
     Active Substance: PREGABALIN
  9. BACLOFEN. [Concomitant]
     Active Substance: BACLOFEN
  10. MEBEVERINE [Concomitant]
     Active Substance: MEBEVERINE
  11. TRAMADOL. [Concomitant]
     Active Substance: TRAMADOL
  12. ATENOLOL. [Concomitant]
     Active Substance: ATENOLOL
  13. FINASTERIDE. [Concomitant]
     Active Substance: FINASTERIDE
  14. TILDIUM LA [Concomitant]

REACTIONS (2)
  - Pancreatic carcinoma [Fatal]
  - Metastases to liver [Fatal]

NARRATIVE: CASE EVENT DATE: 201804
